FAERS Safety Report 6596632-5 (Version None)
Quarter: 2010Q1

REPORT INFORMATION
  Report Type: 
  Country: None (occurrence: None)
  Receive Date: 20100222
  Receipt Date: 20100222
  Transmission Date: 20100710
  Serious: Yes (Disabling)
  Sender: FDA-Public Use
  Company Number: None

PATIENT
  Sex: Female
  Weight: 75 kg

DRUGS (16)
  1. TAXOTERE [Suspect]
     Indication: BREAST CANCER
     Dosage: 133 MG 6 TX 6 WKS APART INTRAVENOUS DRIP - 041
     Route: 041
     Dates: start: 20070914
  2. TAXOTERE [Suspect]
     Indication: BREAST CANCER IN SITU
     Dosage: 133 MG 6 TX 6 WKS APART INTRAVENOUS DRIP - 041
     Route: 041
     Dates: start: 20070914
  3. TAXOTERE [Suspect]
     Indication: BREAST CANCER
     Dosage: 133 MG 6 TX 6 WKS APART INTRAVENOUS DRIP - 041
     Route: 041
     Dates: start: 20071005
  4. TAXOTERE [Suspect]
     Indication: BREAST CANCER IN SITU
     Dosage: 133 MG 6 TX 6 WKS APART INTRAVENOUS DRIP - 041
     Route: 041
     Dates: start: 20071005
  5. TAXOTERE [Suspect]
     Indication: BREAST CANCER
     Dosage: 133 MG 6 TX 6 WKS APART INTRAVENOUS DRIP - 041
     Route: 041
     Dates: start: 20071026
  6. TAXOTERE [Suspect]
     Indication: BREAST CANCER IN SITU
     Dosage: 133 MG 6 TX 6 WKS APART INTRAVENOUS DRIP - 041
     Route: 041
     Dates: start: 20071026
  7. TAXOTERE [Suspect]
     Indication: BREAST CANCER
     Dosage: 133 MG 6 TX 6 WKS APART INTRAVENOUS DRIP - 041
     Route: 041
     Dates: start: 20071116
  8. TAXOTERE [Suspect]
     Indication: BREAST CANCER IN SITU
     Dosage: 133 MG 6 TX 6 WKS APART INTRAVENOUS DRIP - 041
     Route: 041
     Dates: start: 20071116
  9. TAXOTERE [Suspect]
     Indication: BREAST CANCER
     Dosage: 133 MG 6 TX 6 WKS APART INTRAVENOUS DRIP - 041
     Route: 041
     Dates: start: 20071207
  10. TAXOTERE [Suspect]
     Indication: BREAST CANCER IN SITU
     Dosage: 133 MG 6 TX 6 WKS APART INTRAVENOUS DRIP - 041
     Route: 041
     Dates: start: 20071207
  11. TAXOTERE [Suspect]
     Indication: BREAST CANCER
     Dosage: 133 MG 6 TX 6 WKS APART INTRAVENOUS DRIP - 041
     Route: 041
     Dates: start: 20071228
  12. TAXOTERE [Suspect]
     Indication: BREAST CANCER IN SITU
     Dosage: 133 MG 6 TX 6 WKS APART INTRAVENOUS DRIP - 041
     Route: 041
     Dates: start: 20071228
  13. ADRIAMYCIN PFS [Concomitant]
  14. CYTOXAN [Concomitant]
  15. TACOTERE [Concomitant]
  16. NEULESTA [Concomitant]

REACTIONS (1)
  - ALOPECIA [None]
